FAERS Safety Report 24163812 (Version 1)
Quarter: 2024Q3

REPORT INFORMATION
  Report Type: Spontaneous
  Country: KR (occurrence: None)
  Receive Date: 20240801
  Receipt Date: 20240801
  Transmission Date: 20241016
  Serious: Yes (Death, Hospitalization)
  Sender: ASTRAZENECA
  Company Number: 2024A174674

PATIENT
  Sex: Male

DRUGS (7)
  1. IMFINZI [Suspect]
     Active Substance: DURVALUMAB
     Route: 042
  2. IMFINZI [Suspect]
     Active Substance: DURVALUMAB
     Dosage: 500MG / 3VIAL
     Route: 042
     Dates: start: 20240124
  3. IMFINZI [Suspect]
     Active Substance: DURVALUMAB
     Dosage: 500MG / 3VIAL
     Route: 042
     Dates: start: 20240216
  4. IMFINZI [Suspect]
     Active Substance: DURVALUMAB
     Dosage: 500MG / 3VIAL
     Route: 042
     Dates: start: 20240308
  5. IMFINZI [Suspect]
     Active Substance: DURVALUMAB
     Dosage: 500MG / 3VIAL
     Route: 042
     Dates: start: 20240329
  6. IMFINZI [Suspect]
     Active Substance: DURVALUMAB
     Dosage: 500MG / 3VIAL
     Route: 042
     Dates: start: 20240419
  7. IMFINZI [Suspect]
     Active Substance: DURVALUMAB
     Dosage: 500MG / 3VIAL
     Route: 042
     Dates: start: 20240517

REACTIONS (1)
  - Cholangiocarcinoma [Fatal]
